FAERS Safety Report 13767432 (Version 1)
Quarter: 2017Q3

REPORT INFORMATION
  Report Type: Spontaneous
  Country: US (occurrence: US)
  Receive Date: 20170719
  Receipt Date: 20170719
  Transmission Date: 20171127
  Serious: No
  Sender: FDA-Public Use
  Company Number: US-SHIRE-US201714201

PATIENT

DRUGS (1)
  1. XIIDRA [Suspect]
     Active Substance: LIFITEGRAST
     Indication: PRODUCT USED FOR UNKNOWN INDICATION
     Route: 047

REACTIONS (6)
  - Eye swelling [Unknown]
  - Eyelid oedema [Unknown]
  - Joint swelling [Unknown]
  - Swelling face [Unknown]
  - Localised oedema [Unknown]
  - Peripheral swelling [Unknown]
